FAERS Safety Report 9239777 (Version 5)
Quarter: 2014Q2

REPORT INFORMATION
  Report Type: Report from Study
  Country: CA (occurrence: CA)
  Receive Date: 20130418
  Receipt Date: 20140609
  Transmission Date: 20141212
  Serious: Yes (Hospitalization, Other)
  Sender: FDA-Public Use
  Company Number: PHHY2013CA035983

PATIENT
  Age: 79 Year
  Sex: Male

DRUGS (1)
  1. SANDOSTATIN LAR [Suspect]
     Indication: GASTRIC ANTRAL VASCULAR ECTASIA
     Dosage: 10 MG, EVERY 4 WEEKS
     Route: 030
     Dates: start: 20130409

REACTIONS (7)
  - Asthenia [Unknown]
  - Blood pressure systolic increased [Unknown]
  - Blood pressure diastolic decreased [Unknown]
  - Amnesia [Unknown]
  - Confusional state [Unknown]
  - Disturbance in attention [Unknown]
  - Disorientation [Unknown]
